FAERS Safety Report 4470165-4 (Version None)
Quarter: 2004Q3

REPORT INFORMATION
  Report Type: 
  Country: None (occurrence: None)
  Receive Date: 20040910
  Receipt Date: 20040803
  Transmission Date: 20050211
  Serious: No
  Sender: FDA-Public Use
  Company Number: 2004226995US

PATIENT
  Age: 27 Year
  Sex: Female

DRUGS (1)
  1. BEXTRA [Suspect]
     Indication: SURGERY
     Dates: start: 20040803

REACTIONS (3)
  - PRURITUS [None]
  - RASH [None]
  - THROAT IRRITATION [None]
